FAERS Safety Report 23892722 (Version 1)
Quarter: 2024Q2

REPORT INFORMATION
  Report Type: Spontaneous
  Country: DE (occurrence: DE)
  Receive Date: 20240524
  Receipt Date: 20240524
  Transmission Date: 20240715
  Serious: Yes (Hospitalization)
  Sender: FDA-Public Use
  Company Number: DE-TEVA-VS-3200424

PATIENT
  Age: 70 Year

DRUGS (2)
  1. SULFAMETHOXAZOLE\TRIMETHOPRIM [Suspect]
     Active Substance: SULFAMETHOXAZOLE\TRIMETHOPRIM
     Indication: Urinary tract infection
     Dosage: FORM STRENGTH: 800 MG/160 MG, RATIOPHARM
     Route: 048
     Dates: start: 20240507
  2. FERRO-SANOL DUODENAL [Concomitant]
     Active Substance: FERROUS GLYCINE SULFATE

REACTIONS (7)
  - Generalised tonic-clonic seizure [Unknown]
  - Fall [Unknown]
  - Skin abrasion [Unknown]
  - Imperception [Unknown]
  - Tongue biting [Unknown]
  - Dizziness [Unknown]
  - Disorientation [Unknown]

NARRATIVE: CASE EVENT DATE: 20240510
